FAERS Safety Report 5741952-7 (Version None)
Quarter: 2008Q2

REPORT INFORMATION
  Report Type: 
  Country: None (occurrence: None)
  Receive Date: 20080515
  Receipt Date: 20080507
  Transmission Date: 20081010
  Serious: Yes (Other)
  Sender: FDA-Public Use
  Company Number: 13830

PATIENT
  Age: 75 Year
  Sex: Female

DRUGS (4)
  1. HYOSCYAMINE SULFATE SL TABLETS 0.125MG (ETHEX CORP.) [Suspect]
     Indication: MUSCLE SPASMS
     Dosage: 0.125MG QID PRN ORAL
     Route: 048
     Dates: start: 20071001, end: 20080501
  2. MONTHLY B12 INJECTION [Concomitant]
  3. NIZATADINE [Concomitant]
  4. UNSPECIFIED CALCIUM SUPPLEMENT [Concomitant]

REACTIONS (3)
  - ANAPHYLACTIC REACTION [None]
  - DRUG EFFECT DECREASED [None]
  - PHARMACEUTICAL PRODUCT COMPLAINT [None]
